FAERS Safety Report 5311608-3 (Version None)
Quarter: 2007Q2

REPORT INFORMATION
  Report Type: 
  Country: None (occurrence: None)
  Receive Date: 20070430
  Receipt Date: 20070427
  Transmission Date: 20071010
  Serious: Yes (Other)
  Sender: FDA-Public Use
  Company Number: US-GENENTECH-238568

PATIENT
  Sex: Male

DRUGS (8)
  1. XOLAIR [Suspect]
     Indication: ASTHMA
     Dosage: UNK, Q2W
     Route: 058
     Dates: start: 20050401
  2. FLUTICASONE PROPIONATE [Concomitant]
     Indication: DRUG USE FOR UNKNOWN INDICATION
  3. PROPIONIC ACID [Concomitant]
     Indication: DRUG USE FOR UNKNOWN INDICATION
  4. SALMETEROL XINAFOATE [Concomitant]
     Indication: DRUG USE FOR UNKNOWN INDICATION
  5. BUDESONIDE [Concomitant]
     Indication: DRUG USE FOR UNKNOWN INDICATION
  6. MONTELUKAST SODIUM [Concomitant]
     Indication: DRUG USE FOR UNKNOWN INDICATION
  7. CYCLOSPORINE [Concomitant]
     Indication: DRUG USE FOR UNKNOWN INDICATION
  8. DOXYCYCLINE [Concomitant]
     Indication: DRUG USE FOR UNKNOWN INDICATION

REACTIONS (3)
  - CATARACT [None]
  - CORNEAL ABRASION [None]
  - VISUAL DISTURBANCE [None]
